FAERS Safety Report 7623580-1 (Version None)
Quarter: 2011Q3

REPORT INFORMATION
  Report Type: 
  Country: None (occurrence: None)
  Receive Date: 20110712
  Receipt Date: 20110705
  Transmission Date: 20111222
  Serious: Yes (Death, Hospitalization, Other)
  Sender: FDA-Public Use
  Company Number: 2010AC000546

PATIENT
  Age: 67 Year
  Sex: Male

DRUGS (18)
  1. JANUVIA [Concomitant]
  2. EPINEPHRINE [Concomitant]
  3. DIGOXIN [Suspect]
     Indication: ARRHYTHMIA
     Dosage: PO
     Route: 048
     Dates: start: 20020101, end: 20060101
  4. TORSEMIDE [Concomitant]
  5. PAXIL [Concomitant]
  6. WARFARIN [Concomitant]
  7. DIGOXIN [Suspect]
     Dosage: 0.125 MG; QD; PO
     Route: 048
     Dates: start: 20070723, end: 20080327
  8. *GLIPAZIDE [Concomitant]
  9. ALLOPURINOL [Concomitant]
  10. INSULIN [Concomitant]
  11. METFORMIN [Concomitant]
  12. SYNTHROID [Concomitant]
  13. ATROPINE [Concomitant]
  14. MORPHINE [Concomitant]
  15. GABAPENTIN [Concomitant]
  16. CARTIA XT [Concomitant]
  17. LISINOPRIL [Concomitant]
  18. VYTORIN [Concomitant]

REACTIONS (20)
  - HIATUS HERNIA [None]
  - SLEEP APNOEA SYNDROME [None]
  - ATRIAL FIBRILLATION [None]
  - VENTRICULAR HYPOKINESIA [None]
  - PULMONARY HYPERTENSION [None]
  - CARDIOMEGALY [None]
  - ANGINA UNSTABLE [None]
  - CONGESTIVE CARDIOMYOPATHY [None]
  - PRESYNCOPE [None]
  - NEPHROLITHIASIS [None]
  - ECONOMIC PROBLEM [None]
  - DILATATION VENTRICULAR [None]
  - MYOCARDIAL ISCHAEMIA [None]
  - CARDIOACTIVE DRUG LEVEL INCREASED [None]
  - INJURY [None]
  - BRADYCARDIA [None]
  - MITRAL VALVE INCOMPETENCE [None]
  - TRICUSPID VALVE INCOMPETENCE [None]
  - OXYGEN SATURATION DECREASED [None]
  - WEIGHT INCREASED [None]
